FAERS Safety Report 15218116 (Version 3)
Quarter: 2018Q4

REPORT INFORMATION
  Report Type: Report from Study
  Country: CL (occurrence: CL)
  Receive Date: 20180730
  Receipt Date: 20181128
  Transmission Date: 20190204
  Serious: Yes (Other)
  Sender: FDA-Public Use
  Company Number: CL-BRISTOL-MYERS SQUIBB COMPANY-BMS-2018-039388

PATIENT
  Sex: Female

DRUGS (1)
  1. ABATACEPT [Suspect]
     Active Substance: ABATACEPT
     Indication: RHEUMATOID ARTHRITIS
     Dosage: 125 MG, QWK
     Route: 058
     Dates: start: 20180213

REACTIONS (7)
  - Hypersensitivity [Recovering/Resolving]
  - Musculoskeletal stiffness [Recovering/Resolving]
  - Immobile [Recovering/Resolving]
  - Needle issue [Unknown]
  - Weight increased [Recovering/Resolving]
  - Visual impairment [Recovering/Resolving]
  - Generalised oedema [Recovering/Resolving]
